FAERS Safety Report 7964253-5 (Version None)
Quarter: 2011Q4

REPORT INFORMATION
  Report Type: 
  Country: None (occurrence: None)
  Receive Date: 20111208
  Receipt Date: 20111205
  Transmission Date: 20120403
  Serious: Yes (Other)
  Sender: FDA-Public Use
  Company Number: GB-BAYER-2011-102708

PATIENT
  Age: 38 Year
  Sex: Female
  Weight: 76 kg

DRUGS (7)
  1. TOLTERODINE TARTRATE [Concomitant]
     Dosage: 4 MG, UNK
  2. INTERFERON BETA-1B [Suspect]
     Dosage: 250 ?G, QOD
     Route: 058
  3. ANTIBIOTICS [Suspect]
     Indication: VAGINAL INFECTION
  4. FLUOXETINE [Concomitant]
     Dosage: 20 MG, UNK
  5. INTERFERON BETA-1B [Suspect]
     Indication: RELAPSING-REMITTING MULTIPLE SCLEROSIS
     Dosage: 250 ?G, QOD
     Route: 058
     Dates: start: 20110901
  6. AMITRIPTYLINE HCL [Concomitant]
     Dosage: 30 MG, UNK
  7. HORMONAL CONTRACEPTIVES FOR SYSTEMIC USE [Concomitant]

REACTIONS (13)
  - INJECTION SITE REACTION [None]
  - MUSCLE SPASMS [None]
  - VAGINITIS BACTERIAL [None]
  - MALAISE [None]
  - MUSCULAR WEAKNESS [None]
  - UHTHOFF'S PHENOMENON [None]
  - PAIN IN EXTREMITY [None]
  - LOWER RESPIRATORY TRACT INFECTION VIRAL [None]
  - SMEAR CERVIX ABNORMAL [None]
  - VAGINAL DISCHARGE [None]
  - BACK PAIN [None]
  - ADMINISTRATION SITE REACTION [None]
  - INFLUENZA LIKE ILLNESS [None]
